FAERS Safety Report 7167287-6 (Version None)
Quarter: 2010Q4

REPORT INFORMATION
  Report Type: 
  Country: None (occurrence: None)
  Receive Date: 20101216
  Receipt Date: 20101209
  Transmission Date: 20110411
  Serious: Yes (Hospitalization, Disabling, Other)
  Sender: FDA-Public Use
  Company Number: US-MERCK-1003USA01826

PATIENT
  Age: 22 Year
  Sex: Male

DRUGS (1)
  1. FOSAMAX [Suspect]
     Indication: OSTEOPENIA
     Route: 048
     Dates: start: 19980215, end: 20060206

REACTIONS (8)
  - ADVERSE EVENT [None]
  - DRUG INEFFECTIVE [None]
  - FEMORAL NECK FRACTURE [None]
  - FEMUR FRACTURE [None]
  - HIP FRACTURE [None]
  - LOW TURNOVER OSTEOPATHY [None]
  - STRESS FRACTURE [None]
  - TOOTH DISORDER [None]
